FAERS Safety Report 21243073 (Version 8)
Quarter: 2022Q4

REPORT INFORMATION
  Report Type: Spontaneous
  Country: US (occurrence: US)
  Receive Date: 20220823
  Receipt Date: 20221012
  Transmission Date: 20230112
  Serious: Yes (Hospitalization, Other)
  Sender: FDA-Public Use
  Company Number: US-GLAXOSMITHKLINE-US2022AMR120594

PATIENT

DRUGS (5)
  1. FLOLAN [Suspect]
     Active Substance: EPOPROSTENOL SODIUM
     Indication: Pulmonary arterial hypertension
     Dosage: 32.2 NG/KG, CO
     Dates: start: 20180416
  2. GLYCINE\MANNITOL\SODIUM CHLORIDE [Suspect]
     Active Substance: GLYCINE\MANNITOL\SODIUM CHLORIDE
     Indication: Vehicle solution use
     Dosage: UNK
     Dates: start: 20180416
  3. OPSUMIT [Concomitant]
     Active Substance: MACITENTAN
     Indication: Product used for unknown indication
     Dosage: UNK
  4. SILDENAFIL CITRATE [Concomitant]
     Active Substance: SILDENAFIL CITRATE
     Indication: Product used for unknown indication
     Dosage: UNK
  5. ELIQUIS [Concomitant]
     Active Substance: APIXABAN
     Indication: Product used for unknown indication
     Dosage: UNK

REACTIONS (16)
  - Complication associated with device [Recovering/Resolving]
  - Catheter site swelling [Recovering/Resolving]
  - Catheter site bruise [Recovering/Resolving]
  - Device alarm issue [Unknown]
  - Drug eruption [Unknown]
  - Hand dermatitis [Unknown]
  - Catheter site pain [Not Recovered/Not Resolved]
  - Catheter site erythema [Unknown]
  - Oedema peripheral [Unknown]
  - Catheter site inflammation [Unknown]
  - Catheter site eczema [Unknown]
  - Dyspnoea [Unknown]
  - Catheter site rash [Unknown]
  - Catheter site discharge [Unknown]
  - Skin exfoliation [Unknown]
  - Catheter site irritation [Unknown]

NARRATIVE: CASE EVENT DATE: 20220914
